FAERS Safety Report 5213506-2 (Version None)
Quarter: 2007Q1

REPORT INFORMATION
  Report Type: 
  Country: None (occurrence: None)
  Receive Date: 20070119
  Receipt Date: 20061106
  Transmission Date: 20070707
  Serious: Yes (Other)
  Sender: FDA-Public Use
  Company Number: US-ROCHE-456050

PATIENT
  Age: 81 Year
  Sex: Female
  Weight: 46.7 kg

DRUGS (4)
  1. BONIVA [Suspect]
     Indication: OSTEOPOROSIS
     Route: 048
     Dates: start: 20060713, end: 20060913
  2. PREDNISONE [Suspect]
     Indication: ARTHRITIS
     Route: 048
     Dates: start: 20060715
  3. IBUPROFEN [Interacting]
     Indication: ARTHRITIS
     Route: 048
     Dates: start: 20060715, end: 20060915
  4. PROTONIX [Concomitant]
     Route: 048

REACTIONS (4)
  - DIARRHOEA [None]
  - DRUG INTERACTION [None]
  - OESOPHAGEAL PAIN [None]
  - SPINAL COMPRESSION FRACTURE [None]
